FAERS Safety Report 25119926 (Version 2)
Quarter: 2025Q2

REPORT INFORMATION
  Report Type: Report from Study
  Country: CA (occurrence: CA)
  Receive Date: 20250325
  Receipt Date: 20250403
  Transmission Date: 20250716
  Serious: Yes (Other)
  Sender: BIOCON
  Company Number: CA-BIOCON BIOLOGICS LIMITED-BBL2023001715

PATIENT

DRUGS (1)
  1. HULIO [Suspect]
     Active Substance: ADALIMUMAB-FKJP
     Indication: Crohn^s disease
     Dosage: 40 MG, Q2W
     Route: 058
     Dates: start: 20231121

REACTIONS (20)
  - Growth failure [Unknown]
  - Body height below normal [Unknown]
  - Frustration tolerance decreased [Unknown]
  - Weight decreased [Unknown]
  - Screaming [Unknown]
  - Faeces hard [Unknown]
  - Emotional distress [Unknown]
  - Constipation [Unknown]
  - Diarrhoea [Unknown]
  - Injection site pain [Unknown]
  - Abdominal pain upper [Unknown]
  - Injection site rash [Unknown]
  - Rash [Unknown]
  - Lack of injection site rotation [Unknown]
  - Product administered at inappropriate site [Unknown]
  - Incorrect product administration duration [Unknown]
  - Incorrect dose administered by device [Unknown]
  - Needle issue [Unknown]
  - Device issue [Unknown]
  - Drug ineffective [Unknown]
